FAERS Safety Report 6228360-X (Version None)
Quarter: 2009Q2

REPORT INFORMATION
  Report Type: 
  Country: None (occurrence: None)
  Receive Date: 20090612
  Receipt Date: 20090530
  Transmission Date: 20091009
  Serious: Yes (Hospitalization)
  Sender: FDA-Public Use
  Company Number: US-PFIZER INC-2008093631

PATIENT
  Sex: Female
  Weight: 61.224 kg

DRUGS (26)
  1. SILDENAFIL CITRATE [Suspect]
     Indication: PULMONARY HYPERTENSION
     Dosage: 20 MG, 3X/DAY
     Route: 048
     Dates: start: 20040304
  2. EPOPROSTENOL [Concomitant]
  3. ORENCIA [Concomitant]
     Route: 042
  4. TEMAZEPAM [Concomitant]
     Route: 048
  5. CALCIUM [Concomitant]
     Route: 048
  6. CELLCEPT [Concomitant]
     Route: 048
  7. WARFARIN SODIUM [Concomitant]
     Route: 048
  8. ELAVIL [Concomitant]
     Route: 048
  9. PREDNISONE [Concomitant]
     Route: 048
  10. VANIQA [Concomitant]
     Route: 061
  11. TYLENOL W/ CODEINE NO. 3 [Concomitant]
     Route: 048
  12. POTASSIUM CHLORIDE [Concomitant]
     Route: 048
  13. PREVACID [Concomitant]
     Route: 048
  14. SPIRONOLACTONE [Concomitant]
     Route: 048
  15. TEARISOL [Concomitant]
     Route: 047
  16. FISH OIL [Concomitant]
     Route: 048
  17. FLOLAN [Concomitant]
     Route: 042
  18. FLUOCINONIDE [Concomitant]
     Route: 061
  19. FOLIC ACID [Concomitant]
     Route: 048
  20. FOSAMAX [Concomitant]
     Route: 058
  21. LYRICA [Concomitant]
     Route: 048
  22. VITAMIN D [Concomitant]
     Route: 048
  23. TRILEPTAL [Concomitant]
     Route: 048
  24. TRAMADOL HCL [Concomitant]
     Route: 048
  25. OXYGEN [Concomitant]
     Route: 045
  26. PLAQUENIL [Concomitant]
     Route: 048

REACTIONS (2)
  - SERRATIA INFECTION [None]
  - STAPHYLOCOCCAL INFECTION [None]
